FAERS Safety Report 4761725-1 (Version None)
Quarter: 2005Q3

REPORT INFORMATION
  Report Type: 
  Country: None (occurrence: None)
  Receive Date: 20050906
  Receipt Date: 20050825
  Transmission Date: 20060218
  Serious: Yes (Death, Hospitalization)
  Sender: FDA-Public Use
  Company Number: JP-JNJFOC-20050801753

PATIENT
  Sex: Female

DRUGS (9)
  1. LEUSTATIN [Suspect]
     Route: 065
  2. LEUSTATIN [Suspect]
     Route: 065
  3. LEUSTATIN [Suspect]
     Route: 065
  4. LEUSTATIN [Suspect]
     Route: 065
  5. LEUSTATIN [Suspect]
     Route: 065
  6. RITUXIMAB [Suspect]
     Route: 065
  7. RITUXIMAB [Suspect]
     Route: 065
  8. RITUXIMAB [Suspect]
     Route: 065
  9. RITUXIMAB [Suspect]
     Route: 065

REACTIONS (2)
  - HEPATIC FAILURE [None]
  - HEPATITIS FULMINANT [None]
